FAERS Safety Report 7716460-4 (Version None)
Quarter: 2011Q3

REPORT INFORMATION
  Report Type: 
  Country: None (occurrence: None)
  Receive Date: 20110829
  Receipt Date: 20110824
  Transmission Date: 20111222
  Serious: Yes (Death, Hospitalization, Other)
  Sender: FDA-Public Use
  Company Number: PHHY2011DE40150

PATIENT
  Sex: Female
  Weight: 43 kg

DRUGS (8)
  1. ZOMETA [Suspect]
     Dosage: 4 MG, EVERY FOUR WEEKS
     Route: 042
     Dates: start: 20110413, end: 20110413
  2. CAPECITABINE [Suspect]
     Dosage: 2000 MG, PER DAY
     Route: 048
     Dates: start: 20110413, end: 20110430
  3. ZOMETA [Suspect]
     Indication: METASTASES TO BONE
     Dosage: 4 MG, EVERY FOUR WEEKS
     Route: 042
     Dates: start: 20100825
  4. LETROZOLE [Concomitant]
     Indication: ENDOCRINE DISORDER
     Dates: start: 20100825
  5. GRANISETRON [Concomitant]
     Dosage: 4 MG, DAILY
     Route: 048
     Dates: start: 20110419, end: 20110430
  6. LOPERAMIDE HCL [Concomitant]
     Indication: DIARRHOEA
     Dates: start: 20110419, end: 20110430
  7. LAPATINIB [Suspect]
     Indication: BREAST CANCER
     Dosage: 1250 MG, PER DAY
     Route: 048
     Dates: start: 20110413, end: 20110430
  8. DEXAMETHASONE [Concomitant]
     Dosage: 17 MG, DAILY
     Route: 048
     Dates: start: 20100419, end: 20110430

REACTIONS (7)
  - HEADACHE [None]
  - DEATH [None]
  - COGNITIVE DISORDER [None]
  - ATAXIA [None]
  - HEPATIC NEOPLASM [None]
  - HYDROCEPHALUS [None]
  - INTRACRANIAL PRESSURE INCREASED [None]
